FAERS Safety Report 7914916-2 (Version None)
Quarter: 2011Q4

REPORT INFORMATION
  Report Type: 
  Country: None (occurrence: None)
  Receive Date: 20111115
  Receipt Date: 20111111
  Transmission Date: 20120403
  Serious: Yes (Other)
  Sender: FDA-Public Use
  Company Number: GB-PFIZER INC-2011277895

PATIENT
  Age: 31 Year
  Sex: Male

DRUGS (1)
  1. VARENICLINE TARTRATE [Suspect]
     Dosage: 1 MG, 2X/DAY
     Route: 048
     Dates: start: 20110815, end: 20111023

REACTIONS (3)
  - FLAT AFFECT [None]
  - SOCIAL AVOIDANT BEHAVIOUR [None]
  - DEPRESSED MOOD [None]
